FAERS Safety Report 11432488 (Version 4)
Quarter: 2015Q4

REPORT INFORMATION
  Report Type: Report from Study
  Country: US (occurrence: US)
  Receive Date: 20150828
  Receipt Date: 20151105
  Transmission Date: 20160304
  Serious: Yes (Hospitalization)
  Sender: FDA-Public Use
  Company Number: US-VERTEX PHARMACEUTICALS-2015-003488

PATIENT
  Age: 13 Year
  Sex: Female
  Weight: 37 kg

DRUGS (29)
  1. ORKAMBI [Suspect]
     Active Substance: IVACAFTOR\LUMACAFTOR
     Dosage: 200-125 MG, BID
     Route: 048
     Dates: start: 201509
  2. ALBUTEROL SULFATE. [Concomitant]
     Active Substance: ALBUTEROL SULFATE
     Indication: DYSPNOEA
  3. HYDROCORTISON [Concomitant]
     Active Substance: HYDROCORTISONE
     Indication: ECZEMA
     Dosage: 2.5 %, UNK
     Route: 061
     Dates: start: 20130327
  4. VERAMYST [Concomitant]
     Active Substance: FLUTICASONE FUROATE
     Dosage: 1 SPRAY IN EACH NOSTRIL, QD
     Route: 045
  5. BENADRYL [Concomitant]
     Active Substance: DIPHENHYDRAMINE HYDROCHLORIDE
     Dosage: 1 DF, QD
     Route: 048
     Dates: start: 20140203
  6. COLISTIN [Concomitant]
     Active Substance: COLISTIN
     Dosage: 150 MG, BID, FOR 28 DAYS ON/OFF CYCLE
     Route: 055
     Dates: start: 20150728
  7. LORATADINE. [Concomitant]
     Active Substance: LORATADINE
     Dosage: 10 MG, QD
     Route: 048
     Dates: start: 20150817
  8. PROVENTIL HFA [Concomitant]
     Active Substance: ALBUTEROL SULFATE
     Indication: DYSPNOEA
  9. SYMBICORT [Concomitant]
     Active Substance: BUDESONIDE\FORMOTEROL FUMARATE DIHYDRATE
     Dosage: INHALE 2 PUFFS WITH SPACER, BID
     Dates: start: 20150817
  10. TOBI [Concomitant]
     Active Substance: TOBRAMYCIN
     Dosage: 300MG/5 ML, BID, CYCLE 28 DAYS OFF/28 DAYS ON
     Route: 055
     Dates: start: 20150720
  11. SODIUM CHLORIDE. [Concomitant]
     Active Substance: SODIUM CHLORIDE
     Dosage: 3 %, BID
     Route: 055
     Dates: start: 20150817
  12. ORKAMBI [Suspect]
     Active Substance: IVACAFTOR\LUMACAFTOR
     Indication: CYSTIC FIBROSIS
     Dosage: 400-250 MG, BID
     Route: 048
     Dates: start: 20150810, end: 201508
  13. NEXIUM [Concomitant]
     Active Substance: ESOMEPRAZOLE MAGNESIUM
     Dosage: 40 MG, QD
     Route: 048
     Dates: start: 20150817
  14. PROVENTIL HFA [Concomitant]
     Active Substance: ALBUTEROL SULFATE
     Indication: WHEEZING
     Dosage: INHALE 2-4 PUFFS WITH SPACER EVERY 3-4 HOURS
     Dates: start: 20150817
  15. TWOCAL HN [Concomitant]
     Dosage: 3 CANS NIGHTLY VIA G BUTTON
     Route: 048
     Dates: start: 20140821
  16. ALBUTEROL SULFATE. [Concomitant]
     Active Substance: ALBUTEROL SULFATE
     Indication: COUGH
  17. BOOST [Concomitant]
     Dosage: 237 ML, 5 TIMES/DAY
     Route: 048
     Dates: start: 20150123
  18. CREON [Concomitant]
     Active Substance: PANCRELIPASE AMYLASE\PANCRELIPASE LIPASE\PANCRELIPASE PROTEASE
     Dosage: 3 CAPSULES BEFORE MEALS, 2 BEFORE SNACKS, 2 BEFORE AND AFTER NIGHT TIME G-BUTTON SEEDS
     Dates: start: 20150817
  19. PROVENTIL HFA [Concomitant]
     Active Substance: ALBUTEROL SULFATE
     Indication: COUGH
  20. MONTELUKAST [Concomitant]
     Active Substance: MONTELUKAST SODIUM
     Dosage: 5 MG, QD
     Route: 048
     Dates: start: 20140918
  21. VITAMIN C [Concomitant]
     Active Substance: ASCORBIC ACID
     Dosage: 1 DF, QD
     Route: 048
     Dates: start: 20150210
  22. CIPROFLOXACIN. [Concomitant]
     Active Substance: CIPROFLOXACIN
     Dosage: 500 MG, BID
     Route: 048
     Dates: start: 20150926
  23. ALBUTEROL SULFATE. [Concomitant]
     Active Substance: ALBUTEROL SULFATE
     Indication: WHEEZING
     Dosage: EVERY 3-4 HOURS, PRN
     Route: 055
     Dates: start: 20150817
  24. AQUADEKS [Concomitant]
     Dosage: 1 DF, QD
     Route: 048
     Dates: start: 20150816
  25. AZITHROMYCIN [Concomitant]
     Active Substance: AZITHROMYCIN ANHYDROUS
     Dosage: 1 DF, UNK
     Route: 048
  26. POLYETHYLENE GLYCOL [Concomitant]
     Active Substance: POLYETHYLENE GLYCOLS
     Indication: CONSTIPATION
     Dosage: DISSOLVE 17 GM IN 8 OZ LIQUID, QD
     Route: 048
     Dates: start: 20150817
  27. PULMOZYME [Concomitant]
     Active Substance: DORNASE ALFA
     Dosage: 1 MG/ML, QD
     Route: 055
     Dates: start: 20150817
  28. RISPERIDONE. [Concomitant]
     Active Substance: RISPERIDONE
     Dosage: 1 MG, QD
     Route: 048
     Dates: start: 20150817
  29. URSODIOL. [Concomitant]
     Active Substance: URSODIOL
     Dosage: 300 MG, BID
     Route: 048
     Dates: start: 20150817

REACTIONS (6)
  - Dyspnoea [Not Recovered/Not Resolved]
  - Infective pulmonary exacerbation of cystic fibrosis [Recovering/Resolving]
  - Oxygen saturation decreased [Unknown]
  - Pneumothorax [Recovered/Resolved]
  - Respiration abnormal [Not Recovered/Not Resolved]
  - Cystic fibrosis respiratory infection suppression [Recovered/Resolved]

NARRATIVE: CASE EVENT DATE: 201508
